FAERS Safety Report 15804915 (Version 2)
Quarter: 2019Q2

REPORT INFORMATION
  Report Type: Report from Study
  Country: None (occurrence: US)
  Receive Date: 20190110
  Receipt Date: 20190620
  Transmission Date: 20190711
  Serious: Yes (Other)
  Sender: FDA-Public Use
  Company Number: US-ABBVIE-19K-163-2615548-00

PATIENT
  Age: 47 Year
  Sex: Female

DRUGS (1)
  1. HUMIRA [Suspect]
     Active Substance: ADALIMUMAB
     Indication: CROHN^S DISEASE
     Route: 058
     Dates: start: 2010

REACTIONS (11)
  - Injection site bruising [Recovered/Resolved]
  - Post procedural diarrhoea [Unknown]
  - Injection site discomfort [Recovered/Resolved]
  - Post procedural constipation [Unknown]
  - Intestinal obstruction [Unknown]
  - Haemoglobin increased [Unknown]
  - Injection site mass [Recovered/Resolved]
  - Influenza [Recovered/Resolved]
  - Intestinal fistula [Unknown]
  - Injection site papule [Unknown]
  - Gastrointestinal infection [Recovered/Resolved]

NARRATIVE: CASE EVENT DATE: 201812
